FAERS Safety Report 10975848 (Version 1)
Quarter: 2015Q2

REPORT INFORMATION
  Report Type: Spontaneous
  Country: CZ (occurrence: CZ)
  Receive Date: 20150401
  Receipt Date: 20150401
  Transmission Date: 20150821
  Serious: Yes (Death, Life-Threatening, Hospitalization, Disabling, Other)
  Sender: FDA-Public Use
  Company Number: CZ-009507513-1503CZE008930

PATIENT
  Age: 20 Year
  Sex: Female
  Weight: 49 kg

DRUGS (10)
  1. CASPOFUNGIN ACETATE [Suspect]
     Active Substance: CASPOFUNGIN ACETATE
     Indication: CANDIDA INFECTION
     Dosage: 50 MG, Q24H
     Route: 042
     Dates: start: 20091006, end: 20091013
  2. AMIKACIN [Concomitant]
     Active Substance: AMIKACIN
     Indication: PYREXIA
     Dosage: 400 MG, QD
     Route: 042
     Dates: start: 20091004, end: 20091013
  3. DEFIBROTIDE [Concomitant]
     Active Substance: DEFIBROTIDE (BOVINE)
     Indication: VENOOCCLUSIVE DISEASE
     Dosage: UNK
     Dates: start: 20091008, end: 20091012
  4. ITRACONAZOLE. [Concomitant]
     Active Substance: ITRACONAZOLE
     Indication: ANTIFUNGAL PROPHYLAXIS
     Dosage: 2.5 MG/KG, Q12H
     Route: 048
  5. CYCLOSPORINE. [Concomitant]
     Active Substance: CYCLOSPORINE
     Indication: GRAFT VERSUS HOST DISEASE
     Dosage: 150 MG, QD
     Route: 042
     Dates: start: 20090921, end: 20091011
  6. VORICONAZOLE. [Concomitant]
     Active Substance: VORICONAZOLE
     Indication: ANTIFUNGAL PROPHYLAXIS
     Dosage: 6 MG, Q12H
     Route: 048
  7. MYCOPHENOLATE MOFETIL. [Concomitant]
     Active Substance: MYCOPHENOLATE MOFETIL
     Indication: GRAFT VERSUS HOST DISEASE
     Dosage: 2 G, QD
     Route: 042
     Dates: start: 20090921, end: 20091013
  8. MYCAMINE [Suspect]
     Active Substance: MICAFUNGIN SODIUM
     Indication: ANTIFUNGAL PROPHYLAXIS
     Dosage: 100 MG, Q24H, FULL DOSE
     Route: 042
     Dates: start: 20090916, end: 20091004
  9. SULPERAZON (AMPICILLIN SODIUM (+) SULBACTAM SODIUM) [Concomitant]
     Indication: PYREXIA
     Dosage: 7.5 G, QD
     Route: 042
     Dates: start: 20091007, end: 20091013
  10. ZYVOXID [Concomitant]
     Active Substance: LINEZOLID
     Indication: PYREXIA
     Dosage: 1.2 G, QD
     Route: 042
     Dates: start: 20091005, end: 20091012

REACTIONS (2)
  - Drug resistance [Fatal]
  - Multi-organ failure [Fatal]

NARRATIVE: CASE EVENT DATE: 200910
